FAERS Safety Report 6501938-1 (Version None)
Quarter: 2009Q4

REPORT INFORMATION
  Report Type: 
  Country: None (occurrence: None)
  Receive Date: 20091216
  Receipt Date: 20091022
  Transmission Date: 20100525
  Serious: Yes (Death)
  Sender: FDA-Public Use
  Company Number: FR-PFIZER INC-2009264798

PATIENT
  Age: 60 Year
  Sex: Male

DRUGS (6)
  1. EPIRUBICIN HCL [Suspect]
     Indication: GASTRIC CANCER
     Dosage: 300 MG, CYCLE 1 (2 COURSES)
     Dates: start: 20080529
  2. EPIRUBICIN HCL [Suspect]
     Dosage: 200 MG, CYCLE 2 (2 COURSES)
     Dates: start: 20080813, end: 20080924
  3. CISPLATIN [Suspect]
     Indication: GASTRIC CANCER
     Dosage: 360 MG, CYCLE 1 (2 COURSES)
     Dates: start: 20080529
  4. CISPLATIN [Suspect]
     Dosage: 240 MG, CYCLE 2 (2 COURSES)
     Dates: start: 20080813, end: 20080924
  5. CAPECITABINE [Suspect]
     Indication: GASTRIC CANCER
     Dosage: 159600 MG, CYCLE 1 (2 COURSES)
     Dates: start: 20080529
  6. CAPECITABINE [Suspect]
     Dosage: 95200 MG, CYCLE 2 (2 COURSES)
     Dates: start: 20080813, end: 20080924

REACTIONS (1)
  - CEREBRAL ISCHAEMIA [None]
